FAERS Safety Report 19748144 (Version 1)
Quarter: 2021Q3

REPORT INFORMATION
  Report Type: Spontaneous
  Country: NL (occurrence: NL)
  Receive Date: 20210826
  Receipt Date: 20210826
  Transmission Date: 20211014
  Serious: Yes (Other)
  Sender: FDA-Public Use
  Company Number: NVSC2021NL185077

PATIENT
  Sex: Male
  Weight: 83 kg

DRUGS (1)
  1. SALBUTAMOL [Suspect]
     Active Substance: ALBUTEROL
     Indication: DYSPNOEA EXERTIONAL
     Dosage: 100 UG (ZN BIJ BENAUWDHEID 1 DOSIS) (100UG/DO / SALBUTAMOL 100 REDIHALER 100MCG/DO SPB 200D+INH)
     Route: 065
     Dates: start: 20210628

REACTIONS (1)
  - Device issue [Not Recovered/Not Resolved]
